FAERS Safety Report 8838171 (Version 1)
Quarter: 2012Q4

REPORT INFORMATION
  Report Type: 
  Country: US (occurrence: US)
  Receive Date: 20121012
  Receipt Date: 20121012
  Transmission Date: 20130627
  Serious: Yes (Other)
  Sender: FDA-Public Use
  Company Number: US-ROCHE-1141613

PATIENT
  Sex: Male
  Weight: 9.7 kg

DRUGS (4)
  1. NUTROPIN AQ [Suspect]
     Indication: RENAL FAILURE CHRONIC
     Route: 058
  2. FER IN SOL [Concomitant]
     Dosage: 0.9 CC BID
     Route: 048
  3. PROCRIT [Concomitant]
     Dosage: 1000 UNITS
     Route: 058
  4. FOLATE [Concomitant]
     Route: 065

REACTIONS (5)
  - Vomiting [Unknown]
  - Penile discharge [Unknown]
  - Weight decreased [Unknown]
  - Decreased appetite [Unknown]
  - Liver function test abnormal [Unknown]
